FAERS Safety Report 4416165-1 (Version None)
Quarter: 2004Q2

REPORT INFORMATION
  Report Type: 
  Country: None (occurrence: None)
  Receive Date: 20040623
  Receipt Date: 20040407
  Transmission Date: 20050107
  Serious: No
  Sender: FDA-Public Use
  Company Number: WAES 0404USA00908

PATIENT
  Sex: Male

DRUGS (1)
  1. INVANZ [Suspect]
     Indication: COLITIS
     Dosage: IV
     Route: 042

REACTIONS (3)
  - DIZZINESS [None]
  - LETHARGY [None]
  - MUSCULAR WEAKNESS [None]
